FAERS Safety Report 23081104 (Version 9)
Quarter: 2025Q1

REPORT INFORMATION
  Report Type: Other
  Country: CA (occurrence: CA)
  Receive Date: 20231018
  Receipt Date: 20250211
  Transmission Date: 20250408
  Serious: Yes (Life-Threatening, Hospitalization, Other)
  Sender: PURDUE
  Company Number: CA-HEALTHCANVIG-E2B_06515616

PATIENT
  Age: 3 Decade
  Sex: Male

DRUGS (84)
  1. DILAUDID [Suspect]
     Active Substance: HYDROMORPHONE HYDROCHLORIDE
     Indication: Neuralgia
     Route: 065
  2. DILAUDID [Suspect]
     Active Substance: HYDROMORPHONE HYDROCHLORIDE
     Indication: Guillain-Barre syndrome
     Route: 065
  3. DILAUDID [Suspect]
     Active Substance: HYDROMORPHONE HYDROCHLORIDE
     Indication: Pain
     Route: 042
  4. DILAUDID [Suspect]
     Active Substance: HYDROMORPHONE HYDROCHLORIDE
     Route: 048
  5. DILAUDID [Suspect]
     Active Substance: HYDROMORPHONE HYDROCHLORIDE
     Route: 065
  6. DILAUDID [Suspect]
     Active Substance: HYDROMORPHONE HYDROCHLORIDE
     Route: 065
  7. DILAUDID [Suspect]
     Active Substance: HYDROMORPHONE HYDROCHLORIDE
     Route: 065
  8. DILAUDID [Suspect]
     Active Substance: HYDROMORPHONE HYDROCHLORIDE
     Route: 042
  9. DILAUDID [Suspect]
     Active Substance: HYDROMORPHONE HYDROCHLORIDE
     Route: 048
  10. ACETAMINOPHEN [Suspect]
     Active Substance: ACETAMINOPHEN
     Indication: Neuralgia
     Dosage: 3900 MILLIGRAM, DAILY (1 EVERY 1 DAYS)
     Route: 065
  11. ACETAMINOPHEN [Suspect]
     Active Substance: ACETAMINOPHEN
     Indication: Guillain-Barre syndrome
     Dosage: 2600 MILLIGRAM, DAILY (1 EVERY 1 DAYS)
     Route: 065
  12. ACETAMINOPHEN [Suspect]
     Active Substance: ACETAMINOPHEN
     Indication: Pain
     Route: 062
  13. ACETAMINOPHEN [Suspect]
     Active Substance: ACETAMINOPHEN
     Route: 065
  14. ACETAMINOPHEN [Suspect]
     Active Substance: ACETAMINOPHEN
     Route: 065
  15. DICLOFENAC [Suspect]
     Active Substance: DICLOFENAC
     Indication: Neuralgia
     Route: 065
  16. DICLOFENAC [Suspect]
     Active Substance: DICLOFENAC
     Indication: Guillain-Barre syndrome
  17. DICLOFENAC [Suspect]
     Active Substance: DICLOFENAC
     Indication: Pain
  18. FENTANYL [Suspect]
     Active Substance: FENTANYL
     Indication: Neuralgia
     Dosage: 37.5 MICROGRAM, Q1H (1 EVERY 1 HOURS)
     Route: 065
  19. FENTANYL [Suspect]
     Active Substance: FENTANYL
     Indication: Guillain-Barre syndrome
     Dosage: 25 MICROGRAM, Q1H (1 EVERY 1 HOURS)
     Route: 065
  20. FENTANYL [Suspect]
     Active Substance: FENTANYL
     Indication: Pain
     Route: 065
  21. FENTANYL [Suspect]
     Active Substance: FENTANYL
     Dosage: 25 MILLIGRAM, Q1H (1 EVERY 1 HOURS)
     Route: 062
  22. FENTANYL [Suspect]
     Active Substance: FENTANYL
     Dosage: 37.5 MILLIGRAM, Q1H (1 EVERY 1 HOURS)
     Route: 062
  23. FENTANYL [Suspect]
     Active Substance: FENTANYL
     Route: 065
  24. FENTANYL [Suspect]
     Active Substance: FENTANYL
     Route: 065
  25. FENTANYL [Suspect]
     Active Substance: FENTANYL
     Route: 062
  26. GABAPENTIN [Suspect]
     Active Substance: GABAPENTIN
     Indication: Neuralgia
     Dosage: 900 MILLIGRAM, DAILY (1 EVERY 1 DAYS)
     Route: 065
  27. GABAPENTIN [Suspect]
     Active Substance: GABAPENTIN
     Indication: Guillain-Barre syndrome
     Dosage: 3600 MILLIGRAM, DAILY (1 EVERY 1 DAYS)
     Route: 065
  28. GABAPENTIN [Suspect]
     Active Substance: GABAPENTIN
     Indication: Acute respiratory failure
     Dosage: 300 MILLIGRAM, DAILY (1 EVERY 1 DAYS)
     Route: 065
  29. GABAPENTIN [Suspect]
     Active Substance: GABAPENTIN
     Dosage: 1200 MILLIGRAM, DAILY (1 EVERY 1 DAYS)
     Route: 048
  30. GABAPENTIN [Suspect]
     Active Substance: GABAPENTIN
     Dosage: 1800 MILLIGRAM, DAILY (1 EVERY 1 DAYS)
     Route: 048
  31. GABAPENTIN [Suspect]
     Active Substance: GABAPENTIN
     Dosage: 3600 MILLIGRAM
     Route: 048
  32. GABAPENTIN [Suspect]
     Active Substance: GABAPENTIN
     Dosage: 3900 MILLIGRAM, 1 EVERY 1 DAY
     Route: 065
  33. GABAPENTIN [Suspect]
     Active Substance: GABAPENTIN
     Dosage: 300 MILLIGRAM, DAILY (1 EVERY 1 DAYS)
     Route: 048
  34. GABAPENTIN [Suspect]
     Active Substance: GABAPENTIN
     Route: 065
  35. GABAPENTIN [Suspect]
     Active Substance: GABAPENTIN
     Route: 065
  36. GABAPENTIN [Suspect]
     Active Substance: GABAPENTIN
     Route: 065
  37. GABAPENTIN [Suspect]
     Active Substance: GABAPENTIN
     Route: 065
  38. GABAPENTIN [Suspect]
     Active Substance: GABAPENTIN
     Route: 065
  39. GABAPENTIN [Suspect]
     Active Substance: GABAPENTIN
     Route: 065
  40. GABAPENTIN [Suspect]
     Active Substance: GABAPENTIN
     Route: 048
  41. IBUPROFEN [Suspect]
     Active Substance: IBUPROFEN
     Indication: Neuralgia
     Dosage: 1600 MILLIGRAM, DAILY (1 EVERY 1 DAYS)
     Route: 065
  42. IBUPROFEN [Suspect]
     Active Substance: IBUPROFEN
     Indication: Guillain-Barre syndrome
     Route: 042
  43. IBUPROFEN [Suspect]
     Active Substance: IBUPROFEN
     Indication: Acute respiratory failure
     Dosage: 1600 MILLIGRAM, DAILY (1 EVERY 1 DAYS)
     Route: 065
  44. KETAMINE [Suspect]
     Active Substance: KETAMINE
     Indication: Neuralgia
     Dosage: 30 MILLIGRAM, DAILY (1 EVERY 1 DAYS)
     Route: 050
  45. KETAMINE [Suspect]
     Active Substance: KETAMINE
     Indication: Guillain-Barre syndrome
     Dosage: 40 MILLIGRAM, DAILY (1 EVERY 1 DAYS)
     Route: 050
  46. KETAMINE [Suspect]
     Active Substance: KETAMINE
     Route: 042
  47. KETAMINE [Suspect]
     Active Substance: KETAMINE
     Route: 048
  48. KETAMINE [Suspect]
     Active Substance: KETAMINE
     Dosage: 40 MILLIGRAM, DAILY (1 EVERY 1 DAYS)
     Route: 065
  49. KETAMINE [Suspect]
     Active Substance: KETAMINE
     Route: 065
  50. KETAMINE [Suspect]
     Active Substance: KETAMINE
     Route: 048
  51. KETAMINE [Suspect]
     Active Substance: KETAMINE
     Route: 042
  52. LIDOCAINE [Suspect]
     Active Substance: LIDOCAINE
     Indication: Neuralgia
     Dosage: 3.84 MILLIGRAM, Q1H (1 EVERY 1 HOURS)
     Route: 042
  53. LIDOCAINE [Suspect]
     Active Substance: LIDOCAINE
     Indication: Guillain-Barre syndrome
     Route: 065
  54. LIDOCAINE [Suspect]
     Active Substance: LIDOCAINE
     Indication: Pain
     Dosage: 3.84 MILLIGRAM, Q1H (1 EVERY 1 HOURS)
     Route: 065
  55. LIDOCAINE [Suspect]
     Active Substance: LIDOCAINE
     Route: 065
  56. LIDOCAINE [Suspect]
     Active Substance: LIDOCAINE
     Dosage: 3.84 MILLIGRAM, Q1H (1 EVERY 1 HOURS)
     Route: 061
  57. LIDOCAINE [Suspect]
     Active Substance: LIDOCAINE
     Route: 042
  58. NABILONE [Suspect]
     Active Substance: NABILONE
     Indication: Neuralgia
     Dosage: 2 MILLIGRAM, DAILY (1 EVERY 1 DAYS)
     Route: 065
  59. NABILONE [Suspect]
     Active Substance: NABILONE
     Indication: Guillain-Barre syndrome
     Dosage: 6 MILLIGRAM, DAILY (1 EVERY 1 DAYS)
     Route: 065
  60. NABILONE [Suspect]
     Active Substance: NABILONE
     Indication: Pain
     Route: 042
  61. NABILONE [Suspect]
     Active Substance: NABILONE
     Route: 065
  62. NABILONE [Suspect]
     Active Substance: NABILONE
     Route: 065
  63. OLANZAPINE [Suspect]
     Active Substance: OLANZAPINE
     Indication: Neuralgia
     Dosage: 3 MILLIGRAM, DAILY (1 EVERY 1 DAYS)
     Route: 065
  64. OLANZAPINE [Suspect]
     Active Substance: OLANZAPINE
     Indication: Guillain-Barre syndrome
     Dosage: 2.5 MILLIGRAM, DAILY (1 EVERY 1 DAYS)
     Route: 065
  65. OLANZAPINE [Suspect]
     Active Substance: OLANZAPINE
     Indication: Pain
     Route: 065
  66. OLANZAPINE [Suspect]
     Active Substance: OLANZAPINE
     Route: 065
  67. OLANZAPINE [Suspect]
     Active Substance: OLANZAPINE
     Route: 065
  68. OLANZAPINE [Suspect]
     Active Substance: OLANZAPINE
     Route: 065
  69. PHENYTOIN [Suspect]
     Active Substance: PHENYTOIN
     Indication: Neuralgia
     Dosage: 1500 MILLIGRAM, DAILY (1 EVERY 1 DAYS)
     Route: 065
  70. PHENYTOIN [Suspect]
     Active Substance: PHENYTOIN
     Route: 065
  71. PHENYTOIN [Suspect]
     Active Substance: PHENYTOIN
     Dosage: 500 MILLIGRAM, DAILY (1 EVERY 1 DAYS)
     Route: 065
  72. PHENYTOIN [Suspect]
     Active Substance: PHENYTOIN
     Route: 065
  73. ZOPICLONE [Suspect]
     Active Substance: ZOPICLONE
     Indication: Neuralgia
     Route: 065
  74. ZOPICLONE [Suspect]
     Active Substance: ZOPICLONE
     Indication: Guillain-Barre syndrome
     Route: 065
  75. ZOPICLONE [Suspect]
     Active Substance: ZOPICLONE
     Route: 065
  76. IMMUNE GLOBULIN NOS [Suspect]
     Active Substance: IMMUNE GLOBULIN NOS
     Indication: Guillain-Barre syndrome
     Route: 042
  77. IMMUNE GLOBULIN NOS [Suspect]
     Active Substance: IMMUNE GLOBULIN NOS
     Route: 041
  78. IMMUNE GLOBULIN NOS [Suspect]
     Active Substance: IMMUNE GLOBULIN NOS
     Route: 065
  79. VENLAFAXINE [Suspect]
     Active Substance: VENLAFAXINE HYDROCHLORIDE
     Indication: Neuralgia
     Route: 065
  80. VENLAFAXINE [Suspect]
     Active Substance: VENLAFAXINE HYDROCHLORIDE
     Indication: Guillain-Barre syndrome
     Dosage: 75 MILLIGRAM, 1 EVERY 1 DAY
     Route: 065
  81. VENLAFAXINE [Suspect]
     Active Substance: VENLAFAXINE HYDROCHLORIDE
     Route: 065
  82. BUPIVACAINE [Concomitant]
     Active Substance: BUPIVACAINE
     Indication: Neuralgia
     Route: 065
  83. MORPHINE [Concomitant]
     Active Substance: MORPHINE
     Indication: Neuralgia
     Route: 065
  84. NORTRIPTYLINE [Concomitant]
     Active Substance: NORTRIPTYLINE
     Indication: Neuralgia
     Dosage: 35 MILLIGRAM, 1 EVERY 1 DAYS
     Route: 065

REACTIONS (5)
  - Drug ineffective [Unknown]
  - Drug ineffective for unapproved indication [Unknown]
  - Inspiratory capacity decreased [Unknown]
  - Off label use [Unknown]
  - Therapy non-responder [Unknown]
